FAERS Safety Report 23818092 (Version 1)
Quarter: 2024Q2

REPORT INFORMATION
  Report Type: Other
  Country: US (occurrence: None)
  Receive Date: 20240506
  Receipt Date: 20240506
  Transmission Date: 20240715
  Serious: Yes (Hospitalization)
  Sender: FDA-Public Use
  Company Number: US-ROCHE-3552099

PATIENT
  Age: 61 Year
  Sex: Female
  Weight: 47.216 kg

DRUGS (11)
  1. OCREVUS [Suspect]
     Active Substance: OCRELIZUMAB
     Indication: Secondary progressive multiple sclerosis
     Route: 042
     Dates: start: 202106
  2. OCREVUS [Suspect]
     Active Substance: OCRELIZUMAB
     Indication: Relapsing multiple sclerosis
     Dosage: THEN 600 MG EVERY 6 MONTH DATE OF TREATMENT: 2021-06-30, 2021-07-15, 2023-01-12, 2024-01-23, 2023-07
     Route: 042
  3. ASPIRIN [Concomitant]
     Active Substance: ASPIRIN
  4. ACYCLOVIR [Concomitant]
     Active Substance: ACYCLOVIR
  5. MIRABEGRON [Concomitant]
     Active Substance: MIRABEGRON
  6. ROPINIROLE [Concomitant]
     Active Substance: ROPINIROLE
  7. BACLOFEN [Concomitant]
     Active Substance: BACLOFEN
  8. LISINOPRIL [Concomitant]
     Active Substance: LISINOPRIL
  9. PRIMIDONE [Concomitant]
     Active Substance: PRIMIDONE
  10. ERGOCALCIFEROL [Concomitant]
     Active Substance: ERGOCALCIFEROL
  11. TECFIDERA [Concomitant]
     Active Substance: DIMETHYL FUMARATE

REACTIONS (5)
  - Urinary tract infection [Recovered/Resolved]
  - Sepsis [Recovered/Resolved]
  - Back pain [Recovered/Resolved]
  - Restless legs syndrome [Not Recovered/Not Resolved]
  - Renal aneurysm [Not Recovered/Not Resolved]

NARRATIVE: CASE EVENT DATE: 20220101
